FAERS Safety Report 10198107 (Version 2)
Quarter: 2016Q2

REPORT INFORMATION
  Report Type: Spontaneous
  Country: US (occurrence: US)
  Receive Date: 20140527
  Receipt Date: 20160601
  Transmission Date: 20160815
  Serious: No
  Sender: FDA-Public Use
  Company Number: US-NOVEN-13US007650

PATIENT
  Age: 20 Year
  Sex: Male

DRUGS (2)
  1. DAYTRANA [Suspect]
     Active Substance: METHYLPHENIDATE
     Dosage: 30 UNK, UNK
     Route: 062
     Dates: start: 201503
  2. DAYTRANA [Suspect]
     Active Substance: METHYLPHENIDATE
     Indication: ATTENTION DEFICIT/HYPERACTIVITY DISORDER
     Dosage: 20 MG, UNK
     Route: 062
     Dates: start: 2010

REACTIONS (6)
  - Drug prescribing error [Not Recovered/Not Resolved]
  - Mood altered [Not Recovered/Not Resolved]
  - Insomnia [Not Recovered/Not Resolved]
  - Incorrect drug administration duration [Unknown]
  - Intercepted drug prescribing error [Unknown]
  - Agitation [Not Recovered/Not Resolved]

NARRATIVE: CASE EVENT DATE: 2010
